FAERS Safety Report 6296751-7 (Version None)
Quarter: 2009Q3

REPORT INFORMATION
  Report Type: 
  Country: None (occurrence: None)
  Receive Date: 20090804
  Receipt Date: 20090727
  Transmission Date: 20100115
  Serious: Yes (Other)
  Sender: FDA-Public Use
  Company Number: NSADSS2002005900

PATIENT
  Age: 65 Year
  Sex: Female

DRUGS (7)
  1. REMICADE [Suspect]
     Route: 041
  2. REMICADE [Suspect]
     Indication: RHEUMATOID ARTHRITIS
     Route: 041
  3. CORTICOSTEROIDS [Suspect]
     Indication: DRUG USE FOR UNKNOWN INDICATION
  4. METHOTREXATE [Suspect]
     Indication: DRUG USE FOR UNKNOWN INDICATION
  5. PAROXETINE [Concomitant]
  6. PARACETAMOL [Concomitant]
  7. OMEPRAZOLE [Concomitant]

REACTIONS (1)
  - TUBERCULOSIS [None]
